FAERS Safety Report 5406628-4 (Version None)
Quarter: 2007Q3

REPORT INFORMATION
  Report Type: 
  Country: None (occurrence: None)
  Receive Date: 20070806
  Receipt Date: 20070726
  Transmission Date: 20080115
  Serious: Yes (Other)
  Sender: FDA-Public Use
  Company Number: US-PFIZER INC-2007062231

PATIENT
  Sex: Male
  Weight: 94.3 kg

DRUGS (3)
  1. LYRICA [Suspect]
     Indication: FIBROMYALGIA
     Dates: start: 20070701, end: 20070701
  2. NEURONTIN [Suspect]
     Indication: FIBROMYALGIA
     Dates: start: 20060101, end: 20060101
  3. HYDROCODONE BITARTRATE [Concomitant]

REACTIONS (11)
  - CONFUSIONAL STATE [None]
  - DISORIENTATION [None]
  - DYSPNOEA [None]
  - EJACULATION DISORDER [None]
  - MUSCLE SPASMS [None]
  - MUSCLE TWITCHING [None]
  - MYALGIA [None]
  - NERVOUSNESS [None]
  - PALPITATIONS [None]
  - SOMNOLENCE [None]
  - SPEECH DISORDER [None]
